FAERS Safety Report 7585949-3 (Version None)
Quarter: 2011Q3

REPORT INFORMATION
  Report Type: 
  Country: None (occurrence: None)
  Receive Date: 20110701
  Receipt Date: 20100909
  Transmission Date: 20111222
  Serious: No
  Sender: FDA-Public Use
  Company Number: US-BAYER-201035967NA

PATIENT
  Sex: Female

DRUGS (1)
  1. MIRENA [Suspect]
     Indication: CONTRACEPTION
     Dosage: 20 MCG/24HR, CONT
     Route: 015
     Dates: start: 20100428, end: 20100801

REACTIONS (6)
  - POST PROCEDURAL DISCOMFORT [None]
  - VAGINAL DISCHARGE [None]
  - GENITAL HAEMORRHAGE [None]
  - VAGINAL ODOUR [None]
  - DEVICE EXPULSION [None]
  - VAGINAL HAEMORRHAGE [None]
